FAERS Safety Report 10970031 (Version 3)
Quarter: 2015Q2

REPORT INFORMATION
  Report Type: Spontaneous
  Country: US (occurrence: US)
  Receive Date: 20150331
  Receipt Date: 20150409
  Transmission Date: 20150821
  Serious: No
  Sender: FDA-Public Use
  Company Number: US-TEVA-549786USA

PATIENT
  Age: 82 Year
  Sex: Female
  Weight: 44.49 kg

DRUGS (5)
  1. PROAIR HFA [Suspect]
     Active Substance: ALBUTEROL SULFATE
     Route: 055
  2. IPRATROPIUM BROMIDE AND ALBUTEROL SULFATE [Suspect]
     Active Substance: ALBUTEROL SULFATE\IPRATROPIUM BROMIDE
     Route: 055
  3. PROAIR HFA [Suspect]
     Active Substance: ALBUTEROL SULFATE
     Indication: EMPHYSEMA
     Route: 055
     Dates: start: 2014
  4. BUDESONIDE. [Suspect]
     Active Substance: BUDESONIDE
     Dosage: 0.5MG/2ML
     Route: 055
  5. DIGOXIN. [Concomitant]
     Active Substance: DIGOXIN
     Indication: ATRIAL FIBRILLATION

REACTIONS (4)
  - Dyspnoea [Recovered/Resolved]
  - Drug effect decreased [Recovered/Resolved]
  - Weight decreased [Unknown]
  - Drug resistance [Unknown]

NARRATIVE: CASE EVENT DATE: 20150320
